FAERS Safety Report 5916265-0 (Version None)
Quarter: 2008Q4

REPORT INFORMATION
  Report Type: 
  Country: None (occurrence: None)
  Receive Date: 20081013
  Receipt Date: 20081002
  Transmission Date: 20090506
  Serious: Yes (Disabling, Other)
  Sender: FDA-Public Use
  Company Number: PHHY2008GB23253

PATIENT
  Age: 67 Year
  Sex: Male
  Weight: 63.5 kg

DRUGS (4)
  1. VOLTAREN [Suspect]
     Indication: BACK PAIN
     Dosage: 50 MG, ONCE/SINGLE
     Route: 048
     Dates: start: 20080708
  2. SIMVASTATIN [Suspect]
     Indication: BLOOD CHOLESTEROL INCREASED
     Dosage: 40MG
     Route: 048
     Dates: start: 20070514
  3. ASPIRIN [Concomitant]
     Indication: PROPHYLAXIS
     Dosage: 75MG
     Route: 048
     Dates: start: 20070514
  4. CODEINE LINCTUS [Concomitant]
     Indication: COUGH
     Dosage: 5 MG, PRN
     Dates: start: 20080703, end: 20080715

REACTIONS (4)
  - CIRCULATORY COLLAPSE [None]
  - FALL [None]
  - HEAD INJURY [None]
  - LOSS OF CONSCIOUSNESS [None]
